FAERS Safety Report 8492895-X (Version None)
Quarter: 2012Q3

REPORT INFORMATION
  Report Type: 
  Country: None (occurrence: None)
  Receive Date: 20120706
  Receipt Date: 20120629
  Transmission Date: 20120928
  Serious: Yes (Hospitalization)
  Sender: FDA-Public Use
  Company Number: US-GLAXOSMITHKLINE-A0843990A

PATIENT
  Age: 55 Year
  Sex: Male
  Weight: 169.5 kg

DRUGS (6)
  1. HYDROCHLOROTHIAZIDE [Concomitant]
  2. LISINOPRIL [Concomitant]
  3. SIMVASTATIN [Concomitant]
  4. INSULIN LENTE [Concomitant]
  5. AVANDIA [Suspect]
     Indication: TYPE 2 DIABETES MELLITUS
     Dosage: 4MG PER DAY
     Route: 048
     Dates: start: 20020626, end: 20050701
  6. LEVOTHYROXINE SODIUM [Concomitant]

REACTIONS (7)
  - MYOCARDIAL INFARCTION [None]
  - NEUROPATHY PERIPHERAL [None]
  - THALAMIC INFARCTION [None]
  - CEREBROVASCULAR ACCIDENT [None]
  - ATRIAL FIBRILLATION [None]
  - BALANCE DISORDER [None]
  - GAIT DISTURBANCE [None]
